FAERS Safety Report 17557987 (Version 2)
Quarter: 2020Q4

REPORT INFORMATION
  Report Type: Spontaneous
  Country: JP (occurrence: JP)
  Receive Date: 20200318
  Receipt Date: 20201209
  Transmission Date: 20210113
  Serious: Yes (Hospitalization)
  Sender: FDA-Public Use
  Company Number: JP-EISAI MEDICAL RESEARCH-EC-2020-071694

PATIENT
  Age: 66 Year
  Sex: Male

DRUGS (1)
  1. LENVATINIB [Suspect]
     Active Substance: LENVATINIB
     Indication: PAPILLARY THYROID CANCER
     Dosage: DOSE AND FREQUENCY NOT PROVIDED
     Route: 048

REACTIONS (3)
  - Proteinuria [Recovering/Resolving]
  - Renal impairment [Recovering/Resolving]
  - Thrombotic microangiopathy [Recovering/Resolving]
